FAERS Safety Report 25868597 (Version 1)
Quarter: 2025Q4

REPORT INFORMATION
  Report Type: Spontaneous
  Country: US (occurrence: US)
  Receive Date: 20251001
  Receipt Date: 20251001
  Transmission Date: 20260117
  Serious: Yes (Other)
  Sender: TEVA
  Company Number: US-TEVA-VS-3375314

PATIENT
  Age: 66 Year
  Sex: Male

DRUGS (2)
  1. PHENYTOIN [Interacting]
     Active Substance: PHENYTOIN
     Indication: Temporal lobe epilepsy
     Route: 065
  2. CANNABIS SATIVA FLOWERING TOP [Interacting]
     Active Substance: CANNABIS SATIVA FLOWERING TOP
     Indication: Insomnia
     Dosage: MARIJUANA RESPIRATORY (INHALATION)
     Route: 065

REACTIONS (7)
  - Toxicity to various agents [Unknown]
  - Akathisia [Recovered/Resolved]
  - Chorea [Recovered/Resolved]
  - Dystonia [Recovered/Resolved]
  - Dyskinesia [Unknown]
  - Myoclonus [Recovered/Resolved]
  - Drug interaction [Unknown]
